FAERS Safety Report 9468421 (Version 3)
Quarter: 2013Q4

REPORT INFORMATION
  Report Type: Spontaneous
  Country: US (occurrence: US)
  Receive Date: 20130821
  Receipt Date: 20131011
  Transmission Date: 20140711
  Serious: No
  Sender: FDA-Public Use
  Company Number: US-PFIZER INC-2013238303

PATIENT
  Age: 64 Year
  Sex: Male

DRUGS (2)
  1. SUTENT [Suspect]
     Indication: RENAL CANCER
     Dosage: 50 MG, CYCLIC (4WKS ON 2 WKS OFF)
     Dates: start: 20130531
  2. SUTENT [Suspect]
     Dosage: 12.5 MG AND 25 MG, UNK
     Dates: start: 20130531

REACTIONS (5)
  - Disease progression [Unknown]
  - Renal cancer [Unknown]
  - Fatigue [Recovering/Resolving]
  - Stomatitis [Recovering/Resolving]
  - Skin injury [Recovering/Resolving]
